FAERS Safety Report 8436944-3 (Version None)
Quarter: 2012Q2

REPORT INFORMATION
  Report Type: 
  Country: None (occurrence: None)
  Receive Date: 20120614
  Receipt Date: 20120216
  Transmission Date: 20120825
  Serious: No
  Sender: FDA-Public Use
  Company Number: US-AMGEN-USASP2012010763

PATIENT
  Sex: Male

DRUGS (1)
  1. ARANESP [Suspect]
     Indication: ANAEMIA
     Dosage: 60 MUG, QWK
     Dates: start: 20111101

REACTIONS (3)
  - INJECTION SITE SWELLING [None]
  - INJECTION SITE REACTION [None]
  - HAEMOGLOBIN INCREASED [None]
